FAERS Safety Report 19206527 (Version 1)
Quarter: 2021Q2

REPORT INFORMATION
  Report Type: Spontaneous
  Country: US (occurrence: US)
  Receive Date: 20210503
  Receipt Date: 20210503
  Transmission Date: 20210717
  Serious: Yes (Death)
  Sender: FDA-Public Use
  Company Number: US-PFIZER INC-2020231784

PATIENT
  Age: 70 Year
  Sex: Female
  Weight: 75.3 kg

DRUGS (1)
  1. VYNDAMAX [Suspect]
     Active Substance: TAFAMIDIS
     Indication: AMYLOIDOSIS
     Dosage: 2 DF, 2X/DAY(2 CAPSULES BY MOUTH IN THE MORNING AND 2 CAPSULES BY MOUTH AT NIGHT)
     Route: 048
     Dates: start: 202003

REACTIONS (3)
  - Death [Fatal]
  - Product use in unapproved indication [Unknown]
  - Off label use [Unknown]

NARRATIVE: CASE EVENT DATE: 202003
